FAERS Safety Report 8619142-X (Version None)
Quarter: 2012Q3

REPORT INFORMATION
  Report Type: 
  Country: None (occurrence: None)
  Receive Date: 20120824
  Receipt Date: 20120821
  Transmission Date: 20120928
  Serious: Yes (Hospitalization, Other)
  Sender: FDA-Public Use
  Company Number: PHHY2012BR063201

PATIENT
  Sex: Male

DRUGS (8)
  1. SUSTRATE [Concomitant]
     Indication: CARDIAC DISORDER
     Dosage: 2 DF, QD
  2. CLOPIDEGREL [Concomitant]
     Indication: PROPHYLAXIS
     Dosage: 2 DF, QD
  3. AMIODARONE HYDROCHLORIDE [Concomitant]
     Indication: CARDIAC DISORDER
     Dosage: 2 DF, QD
  4. SINVASTATINA [Concomitant]
     Indication: BLOOD CHOLESTEROL
     Dosage: 2 DF, QD
  5. FORMOTEROL FUMARATE [Suspect]
     Indication: EMPHYSEMA
     Dosage: 1 DF, UNK
     Dates: start: 20111201
  6. FUROSEMIDE [Concomitant]
     Indication: PLEURAL EFFUSION
     Dosage: 2 DF, QD
     Dates: start: 20111201
  7. LIPLESS [Concomitant]
     Indication: BLOOD CHOLESTEROL
     Dosage: 2 DF, QD
  8. SPIRONOLACTONE [Concomitant]
     Indication: PLEURAL EFFUSION
     Dosage: 2 DF, QD
     Dates: start: 20111201

REACTIONS (4)
  - CARDIAC DISORDER [None]
  - PAIN IN EXTREMITY [None]
  - PLEURAL EFFUSION [None]
  - ASTHMA [None]
